FAERS Safety Report 5674341-4 (Version None)
Quarter: 2008Q1

REPORT INFORMATION
  Report Type: 
  Country: None (occurrence: None)
  Receive Date: 20080320
  Receipt Date: 20080307
  Transmission Date: 20080703
  Serious: Yes (Other)
  Sender: FDA-Public Use
  Company Number: IT-AMGEN-UK268557

PATIENT
  Sex: Female

DRUGS (2)
  1. NESPO [Suspect]
     Indication: RENAL FAILURE CHRONIC
     Route: 042
     Dates: start: 20080211, end: 20080305
  2. BLOOD CELLS, PACKED HUMAN [Concomitant]
     Route: 041

REACTIONS (1)
  - APLASIA PURE RED CELL [None]
